FAERS Safety Report 10219871 (Version 2)
Quarter: 2014Q2

REPORT INFORMATION
  Report Type: Spontaneous
  Country: FR (occurrence: FR)
  Receive Date: 20140605
  Receipt Date: 20140609
  Transmission Date: 20141212
  Serious: No
  Sender: FDA-Public Use
  Company Number: FR-NOVOPROD-411317

PATIENT
  Age: 69 Year
  Sex: Male
  Weight: 79 kg

DRUGS (3)
  1. VICTOZA [Suspect]
     Indication: TYPE 2 DIABETES MELLITUS
     Dosage: UNK
     Route: 058
     Dates: start: 201302, end: 201309
  2. CRESTOR [Concomitant]
     Dosage: 1 DF, QD
     Route: 048
  3. PLAVIX [Concomitant]
     Dosage: 1 DF, QD
     Route: 048

REACTIONS (1)
  - Hepatocellular injury [Recovered/Resolved]
